FAERS Safety Report 9305620 (Version 1)
Quarter: 2013Q2

REPORT INFORMATION
  Report Type: Spontaneous
  Country: GB (occurrence: None)
  Receive Date: 20130503
  Receipt Date: 20130503
  Transmission Date: 20140414
  Serious: Yes (Other)
  Sender: FDA-Public Use
  Company Number: 2013035559

PATIENT
  Age: 55 Year
  Sex: Male

DRUGS (2)
  1. IVIG (IMMUNE GLOBULIN INTRAVENOUS (HUMAN) 10% LIQUID) [Suspect]
     Indication: ANTI-GAD ANTIBODY POSITIVE
  2. IVIG (IMMUNE GLOBULIN INTRAVENOUS (HUMAN) 10% LIQUID) [Suspect]
     Indication: ENCEPHALOPATHY

REACTIONS (6)
  - Encephalopathy [None]
  - Disease progression [None]
  - Drug ineffective for unapproved indication [None]
  - Pneumonia [None]
  - Anti-GAD antibody positive [None]
  - Infarction [None]
